FAERS Safety Report 5575702-4 (Version None)
Quarter: 2007Q4

REPORT INFORMATION
  Report Type: 
  Country: None (occurrence: None)
  Receive Date: 20071226
  Receipt Date: 20071210
  Transmission Date: 20080405
  Serious: Yes (Other)
  Sender: FDA-Public Use
  Company Number: ADE2007-0072

PATIENT
  Age: 66 Year
  Sex: Female

DRUGS (4)
  1. AMOXICILLIN [Suspect]
     Indication: SINUSITIS
     Dosage: 500MG TID - PO
     Route: 048
  2. CLARITHROMYCIN [Suspect]
     Indication: SINUSITIS
     Dosage: 250MG - PO
     Route: 048
     Dates: start: 20070510, end: 20070512
  3. OFLOXACIN [Concomitant]
  4. TRIMETHOPRIM [Suspect]
     Dosage: 200MG BID

REACTIONS (2)
  - AGEUSIA [None]
  - ANOSMIA [None]
